FAERS Safety Report 19421252 (Version 1)
Quarter: 2021Q2

REPORT INFORMATION
  Report Type: Report from Study
  Country: CZ (occurrence: CZ)
  Receive Date: 20210615
  Receipt Date: 20210615
  Transmission Date: 20210717
  Serious: Yes (Disabling, Other)
  Sender: FDA-Public Use
  Company Number: CZ-PFIZER INC-2021637273

PATIENT
  Age: 36 Year
  Sex: Female
  Weight: 104 kg

DRUGS (8)
  1. EMANERA [Concomitant]
     Active Substance: ESOMEPRAZOLE MAGNESIUM
     Route: 065
  2. PREGABALIN SANDOZ [Suspect]
     Active Substance: PREGABALIN
     Dosage: 150 MG, BID (TABLET) 2 YEARS AGO
     Route: 048
  3. INDOMETACIN [Concomitant]
     Active Substance: INDOMETHACIN
     Route: 065
  4. DEGAN [Suspect]
     Active Substance: METOCLOPRAMIDE HYDROCHLORIDE
     Route: 065
  5. LYRICA [Suspect]
     Active Substance: PREGABALIN
     Route: 065
  6. CIPRALEX [Concomitant]
     Active Substance: ESCITALOPRAM OXALATE
     Route: 065
  7. CODEINE [Concomitant]
     Active Substance: CODEINE
     Indication: HEADACHE
     Route: 065
  8. CONVULEX [VALPROIC ACID] [Concomitant]
     Active Substance: VALPROIC ACID
     Route: 065

REACTIONS (8)
  - Visual impairment [Unknown]
  - Diarrhoea [Unknown]
  - Decreased appetite [Unknown]
  - Vomiting [Unknown]
  - Overdose [Unknown]
  - Mental impairment [Unknown]
  - Muscle spasms [Unknown]
  - Nausea [Not Recovered/Not Resolved]
